FAERS Safety Report 13883016 (Version 2)
Quarter: 2017Q3

REPORT INFORMATION
  Report Type: Report from Study
  Country: US (occurrence: US)
  Receive Date: 20170818
  Receipt Date: 20170829
  Transmission Date: 20171127
  Serious: Yes (Death, Hospitalization)
  Sender: FDA-Public Use
  Company Number: US-ACTELION-A-US2015-116934

PATIENT
  Age: 85 Year
  Sex: Female
  Weight: 73.47 kg

DRUGS (5)
  1. HYDRALAZINE [Concomitant]
     Active Substance: HYDRALAZINE HYDROCHLORIDE
     Dosage: 50 UNK, UNK
  2. BYSTOLIC [Concomitant]
     Active Substance: NEBIVOLOL HYDROCHLORIDE
     Dosage: 10 UNK, UNK
  3. BUMEX [Concomitant]
     Active Substance: BUMETANIDE
  4. TRACLEER [Suspect]
     Active Substance: BOSENTAN
     Indication: PULMONARY ARTERIAL HYPERTENSION
     Dosage: 125 MG, BID
     Route: 048
     Dates: start: 201010
  5. DILTIAZEM. [Concomitant]
     Active Substance: DILTIAZEM

REACTIONS (8)
  - Renal impairment [Unknown]
  - Hypotension [Unknown]
  - Dialysis [Unknown]
  - Oedema [Unknown]
  - Right ventricular failure [Fatal]
  - Renal failure [Fatal]
  - Dyspnoea [Unknown]
  - Pulmonary hypertension [Fatal]
